FAERS Safety Report 12375315 (Version 1)
Quarter: 2016Q2

REPORT INFORMATION
  Report Type: Spontaneous
  Country: US (occurrence: US)
  Receive Date: 20160517
  Receipt Date: 20160517
  Transmission Date: 20160815
  Serious: Yes (Other)
  Sender: FDA-Public Use
  Company Number: US-PFIZER INC-2016181878

PATIENT
  Age: 60 Year
  Sex: Female

DRUGS (3)
  1. PRED FORTE [Concomitant]
     Active Substance: PREDNISOLONE ACETATE
     Indication: ATROPHY OF GLOBE
     Dosage: 5 ML, 1X/DAY
     Dates: start: 2010
  2. XALATAN [Suspect]
     Active Substance: LATANOPROST
     Indication: GLAUCOMA
     Dosage: FOR RIGHT EYE ONLY,,(BEDTIME)
     Route: 047
  3. TIMOLOL. [Concomitant]
     Active Substance: TIMOLOL
     Indication: INTRAOCULAR PRESSURE TEST
     Dosage: UNK, 1X/DAY (.5% 1XDAILY)
     Dates: start: 1995

REACTIONS (7)
  - Blister [Unknown]
  - Astigmatism [Not Recovered/Not Resolved]
  - Blindness [Recovered/Resolved]
  - Retinal detachment [Unknown]
  - Atrophy of globe [Recovered/Resolved]
  - Corneal infection [Unknown]
  - Condition aggravated [Not Recovered/Not Resolved]

NARRATIVE: CASE EVENT DATE: 2009
